FAERS Safety Report 17500799 (Version 1)
Quarter: 2020Q1

REPORT INFORMATION
  Report Type: Spontaneous
  Country: US (occurrence: US)
  Receive Date: 20200305
  Receipt Date: 20200305
  Transmission Date: 20200409
  Serious: No
  Sender: FDA-Public Use
  Company Number: US-GLAXOSMITHKLINE-US2020039115

PATIENT
  Age: 47 Year
  Sex: Female

DRUGS (1)
  1. ABREVA [Suspect]
     Active Substance: DOCOSANOL
     Indication: ORAL HERPES
     Dosage: UNK (USED IT 4 OR 5 TIMES NEXT DAY)
     Dates: start: 20200218, end: 20200219

REACTIONS (3)
  - Lip erythema [Unknown]
  - Inappropriate schedule of product administration [Unknown]
  - Lip swelling [Unknown]

NARRATIVE: CASE EVENT DATE: 20200218
